FAERS Safety Report 12233723 (Version 1)
Quarter: 2016Q2

REPORT INFORMATION
  Report Type: Spontaneous
  Country: US (occurrence: None)
  Receive Date: 20160401
  Receipt Date: 20160401
  Transmission Date: 20160815
  Serious: Yes (Hospitalization, Other)
  Sender: FDA-Public Use
  Company Number: None

PATIENT
  Age: 47 Year
  Sex: Male
  Weight: 63.5 kg

DRUGS (4)
  1. FLAX SEED [Concomitant]
     Active Substance: FLAX SEED
  2. COQ10 [Concomitant]
     Active Substance: UBIDECARENONE
  3. WHEY PROTEIN ISOLATE [Concomitant]
  4. ATORVASTATIN [Suspect]
     Active Substance: ATORVASTATIN
     Indication: BLOOD CHOLESTEROL INCREASED
     Route: 048

REACTIONS (7)
  - Arthralgia [None]
  - Refusal of treatment by patient [None]
  - Pain in extremity [None]
  - White blood cell count decreased [None]
  - Haemangioma of liver [None]
  - Depression [None]
  - Skin mass [None]

NARRATIVE: CASE EVENT DATE: 20100901
